FAERS Safety Report 12880543 (Version 1)
Quarter: 2016Q4

REPORT INFORMATION
  Report Type: Report from Study
  Country: None (occurrence: BR)
  Receive Date: 20161025
  Receipt Date: 20161025
  Transmission Date: 20170207
  Serious: Yes (Other)
  Sender: FDA-Public Use
  Company Number: BR-ABBVIE-16P-020-1761030-00

PATIENT
  Age: 50 Year
  Sex: Male
  Weight: 74 kg

DRUGS (15)
  1. SERTRALINE [Concomitant]
     Active Substance: SERTRALINE HYDROCHLORIDE
     Indication: DEPRESSION
     Route: 048
     Dates: start: 2015
  2. HUMIRA [Suspect]
     Active Substance: ADALIMUMAB
     Indication: CROHN^S DISEASE
     Route: 058
     Dates: start: 20140114
  3. GABAPENTIN. [Concomitant]
     Active Substance: GABAPENTIN
     Indication: FIBROMYALGIA
     Route: 048
     Dates: start: 2014
  4. METFORMIN [Concomitant]
     Active Substance: METFORMIN HYDROCHLORIDE
     Indication: DIABETES MELLITUS
     Route: 048
     Dates: start: 2013
  5. BIMATOPROST. [Concomitant]
     Active Substance: BIMATOPROST
     Indication: GLAUCOMA
     Dosage: FORM OF ADMINISTRATION: EYE DROP
     Dates: start: 201602
  6. ENALAPRIL [Concomitant]
     Active Substance: ENALAPRIL
     Indication: HYPERTENSION
     Route: 048
     Dates: start: 2006
  7. SIMVASTATIN. [Concomitant]
     Active Substance: SIMVASTATIN
     Indication: CEREBROVASCULAR ACCIDENT PROPHYLAXIS
     Route: 048
     Dates: start: 2013
  8. LITHIUM CARBONATE. [Concomitant]
     Active Substance: LITHIUM CARBONATE
     Indication: BIPOLAR DISORDER
     Route: 048
     Dates: start: 201607
  9. RANITIDINE. [Concomitant]
     Active Substance: RANITIDINE
     Indication: GASTRITIS
     Route: 048
     Dates: start: 2014
  10. DOMPERIDONE [Concomitant]
     Active Substance: DOMPERIDONE
     Indication: FLATULENCE
     Route: 048
     Dates: start: 2008
  11. TIMOLOL. [Concomitant]
     Active Substance: TIMOLOL
     Indication: GLAUCOMA
     Dosage: FORM OF ADMINISTRATION: EYE DROP
     Route: 050
     Dates: start: 2015
  12. AMITRIPTYLINE [Concomitant]
     Active Substance: AMITRIPTYLINE
     Indication: FIBROMYALGIA
     Route: 048
     Dates: start: 2008
  13. AZATHIOPRINE. [Concomitant]
     Active Substance: AZATHIOPRINE
     Indication: CROHN^S DISEASE
     Route: 048
     Dates: start: 2010
  14. OMEPRAZOLE. [Concomitant]
     Active Substance: OMEPRAZOLE
     Indication: GASTRIC DISORDER
     Route: 048
     Dates: start: 2010
  15. BACLOFEN. [Concomitant]
     Active Substance: BACLOFEN
     Indication: FIBROMYALGIA
     Route: 048
     Dates: start: 201511

REACTIONS (9)
  - Dental caries [Recovering/Resolving]
  - Gingivitis [Recovering/Resolving]
  - Constipation [Recovering/Resolving]
  - Intestinal mass [Recovered/Resolved]
  - Burning sensation [Recovered/Resolved]
  - Gingival bleeding [Recovering/Resolving]
  - Abdominal pain [Unknown]
  - Tooth fracture [Unknown]
  - Flatulence [Recovering/Resolving]

NARRATIVE: CASE EVENT DATE: 20140114
